FAERS Safety Report 13035735 (Version 2)
Quarter: 2016Q4

REPORT INFORMATION
  Report Type: Spontaneous
  Country: US (occurrence: US)
  Receive Date: 20161216
  Receipt Date: 20161219
  Transmission Date: 20170207
  Serious: No
  Sender: FDA-Public Use
  Company Number: US-PFIZER INC-2016571281

PATIENT
  Age: 76 Year
  Sex: Female

DRUGS (1)
  1. MAGNESIUM SULFATE. [Suspect]
     Active Substance: MAGNESIUM SULFATE
     Dosage: UNK

REACTIONS (3)
  - Oral discomfort [Unknown]
  - Drug hypersensitivity [Unknown]
  - Glossodynia [Unknown]
